FAERS Safety Report 25509248 (Version 2)
Quarter: 2025Q3

REPORT INFORMATION
  Report Type: Report from Study
  Country: US (occurrence: US)
  Receive Date: 20250703
  Receipt Date: 20250716
  Transmission Date: 20251020
  Serious: Yes (Hospitalization, Other)
  Sender: ALNYLAM PHARMACEUTICALS
  Company Number: US-ALNYLAM PHARMACEUTICALS, INC.-ALN-2025-004092

PATIENT

DRUGS (1)
  1. GIVLAARI [Suspect]
     Active Substance: GIVOSIRAN SODIUM
     Indication: Product used for unknown indication
     Dosage: 301.83 MILLIGRAM, MONTHLY (PRESENTATION 189 MG/ML)
     Route: 058
     Dates: start: 20250307, end: 20250307

REACTIONS (3)
  - Porphyria acute [Unknown]
  - Syncope [Unknown]
  - Dementia [Unknown]

NARRATIVE: CASE EVENT DATE: 20250601
